FAERS Safety Report 10230171 (Version 1)
Quarter: 2014Q2

REPORT INFORMATION
  Report Type: Spontaneous
  Country: US (occurrence: None)
  Receive Date: 20140506
  Receipt Date: 20140506
  Transmission Date: 20141212
  Serious: Yes (Other)
  Sender: FDA-Public Use
  Company Number: 1310365

PATIENT
  Sex: Female

DRUGS (1)
  1. AVASTIN [Suspect]
     Indication: PRODUCT USED FOR UNKNOWN INDICATION
     Dates: start: 200612

REACTIONS (7)
  - Cerebrovascular accident [None]
  - Hypertension [None]
  - Hypoaesthesia [None]
  - Arthralgia [None]
  - Cognitive disorder [None]
  - Speech disorder [None]
  - Amnesia [None]
